FAERS Safety Report 19475805 (Version 1)
Quarter: 2021Q2

REPORT INFORMATION
  Report Type: Spontaneous
  Country: DE (occurrence: DE)
  Receive Date: 20210630
  Receipt Date: 20210630
  Transmission Date: 20210717
  Serious: Yes (Other)
  Sender: FDA-Public Use
  Company Number: DE-TOPROL-2021000132

PATIENT
  Age: 51 Year
  Sex: Female

DRUGS (2)
  1. METOPROLOL SUCCINATE. [Suspect]
     Active Substance: METOPROLOL SUCCINATE
     Dosage: 47.5MG UNKNOWN
     Route: 065
     Dates: start: 2020, end: 202105
  2. METOPROLOL SUCCINATE. [Suspect]
     Active Substance: METOPROLOL SUCCINATE
     Dosage: UNK
     Route: 065
     Dates: start: 202105

REACTIONS (4)
  - Palpitations [Unknown]
  - Dizziness [Unknown]
  - Blood pressure increased [Unknown]
  - Somnolence [Unknown]

NARRATIVE: CASE EVENT DATE: 202105
